FAERS Safety Report 18333696 (Version 1)
Quarter: 2020Q4

REPORT INFORMATION
  Report Type: Spontaneous
  Country: CN (occurrence: CN)
  Receive Date: 20201001
  Receipt Date: 20201001
  Transmission Date: 20210113
  Serious: Yes (Other)
  Sender: FDA-Public Use
  Company Number: CN-PFIZER INC-2020375269

PATIENT
  Age: 56 Year
  Sex: Male

DRUGS (4)
  1. SUNITINIB MALATE. [Suspect]
     Active Substance: SUNITINIB MALATE
     Dosage: 50 MG, CYCLIC (4 WEEKS OF ADMINISTRATION AND 2 WEEKS OF WITHDRAWAL)
     Route: 048
     Dates: start: 20180311
  2. SUNITINIB MALATE. [Suspect]
     Active Substance: SUNITINIB MALATE
     Dosage: 25 MG, CYCLIC (4 WEEKS OF ADMINISTRATION AND 2 WEEKS OF WITHDRAWAL)
     Route: 048
     Dates: start: 20180603
  3. PEMBROLIZUMAB. [Suspect]
     Active Substance: PEMBROLIZUMAB
     Indication: RENAL CELL CARCINOMA RECURRENT
     Dosage: 100 MG, CYCLIC, ONCE EVERY 3 WEEKS
     Route: 041
     Dates: start: 20180327
  4. SUNITINIB MALATE. [Suspect]
     Active Substance: SUNITINIB MALATE
     Indication: RENAL CELL CARCINOMA RECURRENT
     Dosage: 50 MG, CYCLIC (4 WEEKS OF ADMINISTRATION AND 2 WEEKS OF WITHDRAWAL)
     Route: 048
     Dates: start: 2017

REACTIONS (1)
  - Guillain-Barre syndrome [Recovering/Resolving]
